FAERS Safety Report 4953771-X (Version None)
Quarter: 2006Q1

REPORT INFORMATION
  Report Type: 
  Country: None (occurrence: None)
  Receive Date: 20060324
  Receipt Date: 20060324
  Transmission Date: 20060701
  Serious: No
  Sender: FDA-Public Use
  Company Number: None

PATIENT
  Age: 34 Year
  Sex: Male
  Weight: 72 kg

DRUGS (1)
  1. HYDROCODONE BITARTRATE + ACETAMINOPHEN [Suspect]
     Indication: RENAL COLIC
     Dosage: 1 OR 2 TABS Q 6 H PRN
     Dates: start: 20060101, end: 20060103

REACTIONS (1)
  - CONSTIPATION [None]
